FAERS Safety Report 18042255 (Version 1)
Quarter: 2020Q3

REPORT INFORMATION
  Report Type: Spontaneous
  Country: ES (occurrence: ES)
  Receive Date: 20200720
  Receipt Date: 20200720
  Transmission Date: 20201103
  Serious: Yes (Hospitalization)
  Sender: FDA-Public Use
  Company Number: ES-TEVA-2020-ES-1802177

PATIENT
  Age: 84 Year
  Sex: Male

DRUGS (2)
  1. CARBOPLATINO [Suspect]
     Active Substance: CARBOPLATIN
     Indication: LUNG ADENOCARCINOMA
     Dosage: DOSAGE AND PRESCRIBED DOSAGE OF BOTH UNKNOWN CHEMOTHERAPEUTIC AGENTS. FIRST CYCLE.
     Route: 042
     Dates: start: 20200512
  2. PEMETREXED. [Suspect]
     Active Substance: PEMETREXED
     Indication: LUNG ADENOCARCINOMA
     Dosage: PRESCRIBED DOSE AND DOSAGE UNKNOWN, FIRST CYCLE
     Route: 042
     Dates: start: 20200212

REACTIONS (4)
  - Diarrhoea [Recovered/Resolved]
  - Febrile neutropenia [Recovered/Resolved]
  - Anaemia [Recovering/Resolving]
  - Thrombocytopenia [Recovered/Resolved]

NARRATIVE: CASE EVENT DATE: 20200517
